FAERS Safety Report 10733165 (Version 2)
Quarter: 2015Q1

REPORT INFORMATION
  Report Type: Spontaneous
  Country: TR (occurrence: KR)
  Receive Date: 20150123
  Receipt Date: 20150131
  Transmission Date: 20150721
  Serious: Yes (Death, Hospitalization)
  Sender: FDA-Public Use
  Company Number: PHHY2015KR008312

PATIENT
  Age: 84 Year
  Sex: Male

DRUGS (2)
  1. TORASEMIDE [Concomitant]
     Active Substance: TORSEMIDE
     Indication: NEPHROPATHY
     Dosage: 100 MG, QD
     Route: 065
  2. ALLOPURINOL. [Suspect]
     Active Substance: ALLOPURINOL
     Indication: NEPHROPATHY
     Dosage: 100 MG, QD
     Route: 065

REACTIONS (12)
  - Hyperbilirubinaemia [Unknown]
  - Pyrexia [Unknown]
  - Cardiac arrest [Fatal]
  - Azotaemia [Unknown]
  - Eosinophilia [Unknown]
  - Drug reaction with eosinophilia and systemic symptoms [Unknown]
  - Pruritus [Unknown]
  - Hepatic calcification [Unknown]
  - Jaundice [Unknown]
  - Lymphocytosis [Unknown]
  - Rash maculo-papular [Unknown]
  - Hepatic enzyme increased [Unknown]
